FAERS Safety Report 9005268 (Version 1)
Quarter: 2013Q1

REPORT INFORMATION
  Report Type: Spontaneous
  Country: US (occurrence: US)
  Receive Date: 20130108
  Receipt Date: 20130108
  Transmission Date: 20140127
  Serious: Yes (Other)
  Sender: FDA-Public Use
  Company Number: US-MERCK-1301USA002090

PATIENT
  Age: 57 Year
  Sex: Female

DRUGS (5)
  1. SINGULAIR [Suspect]
     Indication: ASTHMA
     Dosage: 250 MICROGRAM, BID
  2. ADVAIR [Suspect]
  3. FLOVENT [Suspect]
  4. PREDNISONE [Concomitant]
  5. VENTOLIN (ALBUTEROL SULFATE) [Concomitant]

REACTIONS (6)
  - Wheezing [Unknown]
  - Palpitations [Unknown]
  - Insomnia [Unknown]
  - Dyspnoea [Unknown]
  - Drug ineffective [Unknown]
  - Asthma [Unknown]
